FAERS Safety Report 6357059-4 (Version None)
Quarter: 2009Q3

REPORT INFORMATION
  Report Type: 
  Country: None (occurrence: None)
  Receive Date: 20090915
  Receipt Date: 20090907
  Transmission Date: 20100115
  Serious: Yes (Hospitalization)
  Sender: FDA-Public Use
  Company Number: AU-AMGEN-US363241

PATIENT
  Sex: Male

DRUGS (3)
  1. PANITUMUMAB [Suspect]
     Indication: COLORECTAL CANCER
     Route: 042
     Dates: start: 20090811
  2. AMG 102 - BLINDED [Suspect]
     Indication: NEOPLASM MALIGNANT
     Route: 042
     Dates: start: 20090811
  3. AMG 479 - BLINDED [Suspect]
     Indication: NEOPLASM
     Route: 042
     Dates: start: 20090811

REACTIONS (1)
  - EASTERN COOPERATIVE ONCOLOGY GROUP PERFORMANCE STATUS WORSENED [None]
